FAERS Safety Report 10818036 (Version 4)
Quarter: 2015Q3

REPORT INFORMATION
  Report Type: Report from Study
  Country: GR (occurrence: GR)
  Receive Date: 20150218
  Receipt Date: 20150712
  Transmission Date: 20151125
  Serious: Yes (Death, Hospitalization)
  Sender: FDA-Public Use
  Company Number: GR-JNJFOC-20150209578

PATIENT
  Age: 49 Year
  Sex: Male
  Weight: 90 kg

DRUGS (2)
  1. NEULASTA [Concomitant]
     Active Substance: PEGFILGRASTIM
     Indication: NEUTROPENIA
     Route: 058
     Dates: start: 20150205, end: 20150205
  2. IBRUTINIB [Suspect]
     Active Substance: IBRUTINIB
     Indication: MANTLE CELL LYMPHOMA
     Route: 048
     Dates: start: 20150111, end: 20150226

REACTIONS (6)
  - Platelet count decreased [Recovered/Resolved]
  - Vertigo [Recovered/Resolved]
  - Disease progression [Fatal]
  - Thrombocytopenia [Not Recovered/Not Resolved]
  - Headache [Recovered/Resolved]
  - Dizziness [Recovered/Resolved]

NARRATIVE: CASE EVENT DATE: 20150210
